FAERS Safety Report 8361451-6 (Version None)
Quarter: 2012Q2

REPORT INFORMATION
  Report Type: 
  Country: None (occurrence: None)
  Receive Date: 20120515
  Receipt Date: 20110914
  Transmission Date: 20120825
  Serious: Yes (Other)
  Sender: FDA-Public Use
  Company Number: US-ALEXION-A201101092

PATIENT
  Sex: Female
  Weight: 93.42 kg

DRUGS (12)
  1. SOLIRIS [Suspect]
     Indication: PAROXYSMAL NOCTURNAL HAEMOGLOBINURIA
     Dosage: 600 MG, UNK
     Route: 042
     Dates: start: 20090401, end: 20090601
  2. PERCOCET [Concomitant]
  3. PREDNISONE TAB [Concomitant]
     Dosage: 20 MG, QD
     Dates: start: 20110825
  4. COUMADIN [Concomitant]
     Dosage: 5 MG, QD
  5. TYLENOL (CAPLET) [Concomitant]
     Dosage: 650 MG, UNK
     Route: 048
  6. VITAMIN B-12 [Concomitant]
  7. COUMADIN [Concomitant]
     Dosage: 7.5 MG, QD
     Route: 048
     Dates: start: 20110721
  8. PREDNISONE TAB [Concomitant]
     Dosage: 10 MG, QD
     Route: 048
  9. SOLIRIS [Suspect]
     Dosage: 900 MG, UNK
     Route: 042
     Dates: start: 20090701, end: 20090901
  10. SOLIRIS [Suspect]
     Dosage: 1200 MG, Q2W
     Route: 042
  11. BENADRYL [Concomitant]
     Dosage: 25 MG, UNK
     Route: 042
  12. FOLIC ACID [Concomitant]
     Dosage: 1 MG, UNK

REACTIONS (9)
  - DECREASED APPETITE [None]
  - DEVICE DISLOCATION [None]
  - PELVIC VENOUS THROMBOSIS [None]
  - HEPATOMEGALY [None]
  - PLEURAL EFFUSION [None]
  - ANAEMIA [None]
  - VOMITING [None]
  - MUSCULOSKELETAL PAIN [None]
  - HAEMATURIA [None]
